FAERS Safety Report 8197538-0 (Version None)
Quarter: 2012Q1

REPORT INFORMATION
  Report Type: 
  Country: None (occurrence: None)
  Receive Date: 20120309
  Receipt Date: 20120306
  Transmission Date: 20120608
  Serious: Yes (Other)
  Sender: FDA-Public Use
  Company Number: DE-ROCHE-1011126

PATIENT
  Sex: Female
  Weight: 77 kg

DRUGS (7)
  1. AVASTIN [Suspect]
     Indication: BREAST CANCER METASTATIC
     Dates: start: 20111104
  2. XELODA [Suspect]
     Indication: BREAST CANCER METASTATIC
     Dosage: 500 MG 4 TABLETS IN EVENING
     Route: 048
     Dates: start: 20111104
  3. INDAPAMIDE [Concomitant]
  4. CALCILAC [Concomitant]
  5. DICLOFENAC SODIUM [Concomitant]
  6. PREDNISOLONE [Concomitant]
  7. HUMINSULIN NORMAL [Concomitant]

REACTIONS (2)
  - C-REACTIVE PROTEIN INCREASED [None]
  - ARTHRALGIA [None]
